FAERS Safety Report 25249719 (Version 1)
Quarter: 2025Q2

REPORT INFORMATION
  Report Type: Spontaneous
  Country: US (occurrence: US)
  Receive Date: 20250429
  Receipt Date: 20250429
  Transmission Date: 20250717
  Serious: Yes (Other)
  Sender: Karo Pharma
  Company Number: US-Karo Pharma-2175616

PATIENT
  Age: 42 Year

DRUGS (6)
  1. TERBINAFINE [Suspect]
     Active Substance: TERBINAFINE
     Indication: Product used for unknown indication
  2. COSENTYX [Suspect]
     Active Substance: SECUKINUMAB
  3. TOPIRAMATE [Suspect]
     Active Substance: TOPIRAMATE
  4. CHOLECALCIFEROL [Suspect]
     Active Substance: CHOLECALCIFEROL
  5. VALACYCLOVIR HYDROCHLORIDE [Suspect]
     Active Substance: VALACYCLOVIR HYDROCHLORIDE
  6. FLUOCINOLONE [Suspect]
     Active Substance: FLUOCINOLONE

REACTIONS (5)
  - Onychomycosis [Unknown]
  - Psoriatic arthropathy [Unknown]
  - Product use in unapproved indication [Unknown]
  - Arthropathy [Unknown]
  - Psoriasis [Unknown]
